FAERS Safety Report 15285245 (Version 1)
Quarter: 2018Q3

REPORT INFORMATION
  Report Type: Spontaneous
  Country: US (occurrence: US)
  Receive Date: 20180816
  Receipt Date: 20180816
  Transmission Date: 20181010
  Serious: No
  Sender: FDA-Public Use
  Company Number: US-SHIRE-US201831570

PATIENT
  Sex: Female
  Weight: 67.12 kg

DRUGS (1)
  1. XIIDRA [Suspect]
     Active Substance: LIFITEGRAST
     Indication: DRY EYE
     Dosage: UNK
     Route: 065
     Dates: start: 20180809

REACTIONS (3)
  - Drug effect delayed [Unknown]
  - Off label use [Unknown]
  - Headache [Unknown]
